FAERS Safety Report 18903960 (Version 2)
Quarter: 2021Q2

REPORT INFORMATION
  Report Type: Spontaneous
  Country: US (occurrence: US)
  Receive Date: 20210217
  Receipt Date: 20210405
  Transmission Date: 20210717
  Serious: Yes (Other)
  Sender: FDA-Public Use
  Company Number: US-GLAXOSMITHKLINE-US2021GSK027773

PATIENT
  Sex: Male

DRUGS (4)
  1. RANITIDINE CAPSULE [Suspect]
     Active Substance: RANITIDINE
     Indication: GASTROINTESTINAL TRACT IRRITATION
     Dosage: OCCASIONAL, 150 MG, BOTH
     Route: 065
     Dates: start: 200801, end: 201401
  2. ZANTAC [Suspect]
     Active Substance: RANITIDINE HYDROCHLORIDE
     Indication: GASTROINTESTINAL TRACT IRRITATION
     Dosage: OCCASIONAL, 150 MG, BOTH
     Route: 065
     Dates: start: 200801, end: 201401
  3. ZANTAC [Suspect]
     Active Substance: RANITIDINE HYDROCHLORIDE
     Indication: GASTROINTESTINAL TRACT IRRITATION
     Dosage: OCCASIONAL, 150 MG, BOTH
     Route: 065
     Dates: start: 200801, end: 201401
  4. ZANTAC [Suspect]
     Active Substance: RANITIDINE HYDROCHLORIDE
     Indication: GASTROINTESTINAL TRACT IRRITATION
     Dosage: OCCASIONAL, 150 MG, BOTH
     Route: 065
     Dates: start: 200801, end: 201401

REACTIONS (1)
  - Prostate cancer [Unknown]
